FAERS Safety Report 23531561 (Version 2)
Quarter: 2024Q1

REPORT INFORMATION
  Report Type: Report from Study
  Country: US (occurrence: US)
  Receive Date: 20240216
  Receipt Date: 20240220
  Transmission Date: 20240410
  Serious: Yes (Other)
  Sender: FDA-Public Use
  Company Number: US-ABBVIE-5640111

PATIENT
  Sex: Female

DRUGS (2)
  1. VENCLEXTA [Suspect]
     Active Substance: VENETOCLAX
     Indication: Chronic lymphocytic leukaemia
     Route: 048
     Dates: start: 20231021
  2. VENCLEXTA [Suspect]
     Active Substance: VENETOCLAX
     Indication: Chronic lymphocytic leukaemia
     Route: 048

REACTIONS (9)
  - Sepsis [Unknown]
  - Arthralgia [Unknown]
  - Back pain [Unknown]
  - Ear haemorrhage [Unknown]
  - White blood cell count increased [Recovering/Resolving]
  - White blood cell count abnormal [Unknown]
  - Pain in extremity [Unknown]
  - Pain [Unknown]
  - Mobility decreased [Unknown]
